FAERS Safety Report 5070121-1 (Version None)
Quarter: 2006Q3

REPORT INFORMATION
  Report Type: 
  Country: None (occurrence: None)
  Receive Date: 20060803
  Receipt Date: 20060724
  Transmission Date: 20061208
  Serious: Yes (Death, Hospitalization)
  Sender: FDA-Public Use
  Company Number: JP-NOVOPROD-255579

PATIENT
  Age: 83 Year
  Sex: Male

DRUGS (1)
  1. NOVOSEVEN [Suspect]
     Indication: HAEMORRHAGE
     Dosage: 6 MG/KG, UNK
     Route: 042
     Dates: start: 20060705, end: 20060709

REACTIONS (1)
  - CONCOMITANT DISEASE PROGRESSION [None]
